FAERS Safety Report 20375265 (Version 3)
Quarter: 2022Q1

REPORT INFORMATION
  Report Type: Spontaneous
  Country: NL (occurrence: NL)
  Receive Date: 20220125
  Receipt Date: 20220330
  Transmission Date: 20220423
  Serious: Yes (Other)
  Sender: FDA-Public Use
  Company Number: NL-BEH-2021136834

PATIENT
  Age: 38 Year
  Sex: Female
  Weight: 69 kg

DRUGS (6)
  1. RHOPHYLAC [Suspect]
     Active Substance: HUMAN RHO(D) IMMUNE GLOBULIN
     Indication: External cephalic version
     Dosage: 1000 INTERNATIONAL UNIT
     Route: 030
     Dates: start: 20210928, end: 20210928
  2. RHOPHYLAC [Suspect]
     Active Substance: HUMAN RHO(D) IMMUNE GLOBULIN
     Indication: External cephalic version
     Dosage: 1000 INTERNATIONAL UNIT
     Route: 030
     Dates: start: 20210928, end: 20210928
  3. RHOPHYLAC [Suspect]
     Active Substance: HUMAN RHO(D) IMMUNE GLOBULIN
     Dosage: UNK
     Route: 065
  4. RHOPHYLAC [Suspect]
     Active Substance: HUMAN RHO(D) IMMUNE GLOBULIN
     Dosage: UNK
     Route: 065
  5. RHOPHYLAC [Suspect]
     Active Substance: HUMAN RHO(D) IMMUNE GLOBULIN
     Dosage: 1000 INTERNATIONAL UNIT
     Route: 030
     Dates: start: 20210928, end: 20210928
  6. RHOPHYLAC [Suspect]
     Active Substance: HUMAN RHO(D) IMMUNE GLOBULIN
     Dosage: 1000 INTERNATIONAL UNIT
     Route: 030
     Dates: start: 20210928, end: 20210928

REACTIONS (3)
  - Meconium in amniotic fluid [Unknown]
  - Expired product administered [Unknown]
  - Maternal exposure during pregnancy [Unknown]

NARRATIVE: CASE EVENT DATE: 20211026
